FAERS Safety Report 4614317-9 (Version None)
Quarter: 2005Q1

REPORT INFORMATION
  Report Type: 
  Country: None (occurrence: None)
  Receive Date: 20050315
  Receipt Date: 20050225
  Transmission Date: 20050727
  Serious: Yes (Hospitalization, Disabling, Other)
  Sender: FDA-Public Use
  Company Number: USA021022161

PATIENT
  Age: 39 Year
  Sex: Male
  Weight: 68 kg

DRUGS (1)
  1. HUMULIN N [Suspect]
     Indication: DIABETES MELLITUS
     Dosage: 12 U DAY
     Dates: start: 19850101

REACTIONS (7)
  - BLINDNESS UNILATERAL [None]
  - CEREBROVASCULAR ACCIDENT [None]
  - LEG AMPUTATION [None]
  - NEUROPATHY [None]
  - POOR PERIPHERAL CIRCULATION [None]
  - RETINAL DETACHMENT [None]
  - UPPER LIMB FRACTURE [None]
